FAERS Safety Report 4927833-7 (Version None)
Quarter: 2006Q1

REPORT INFORMATION
  Report Type: 
  Country: None (occurrence: None)
  Receive Date: 20060222
  Receipt Date: 20060207
  Transmission Date: 20060701
  Serious: Yes (Death)
  Sender: FDA-Public Use
  Company Number: 2006-US-00670

PATIENT
  Age: 56 Year
  Sex: Female

DRUGS (1)
  1. CLOZAPINE [Suspect]
     Indication: SCHIZOPHRENIA
     Dosage: 500 MG, QD, ORAL
     Route: 048
     Dates: start: 20010101, end: 20060101

REACTIONS (3)
  - ASPIRATION [None]
  - CHOKING [None]
  - OBSTRUCTIVE AIRWAYS DISORDER [None]
